FAERS Safety Report 9113022 (Version 1)
Quarter: 2013Q1

REPORT INFORMATION
  Report Type: Spontaneous
  Country: US (occurrence: US)
  Receive Date: 20130211
  Receipt Date: 20130211
  Transmission Date: 20140127
  Serious: No
  Sender: FDA-Public Use
  Company Number: US-009507513-1302USA004139

PATIENT
  Age: 6 Year
  Sex: Female

DRUGS (2)
  1. MIRALAX [Suspect]
     Indication: CONSTIPATION
     Dosage: 2 TSP, QD
     Route: 048
  2. MIRALAX [Suspect]
     Dosage: 2 TBSP, QD
     Route: 048
     Dates: start: 20121215

REACTIONS (3)
  - Accidental overdose [Not Recovered/Not Resolved]
  - Drug administered to patient of inappropriate age [Unknown]
  - Off label use [Unknown]
